FAERS Safety Report 16823049 (Version 1)
Quarter: 2019Q3

REPORT INFORMATION
  Report Type: Spontaneous
  Country: US (occurrence: US)
  Receive Date: 20190918
  Receipt Date: 20190918
  Transmission Date: 20191005
  Serious: Yes (Other)
  Sender: FDA-Public Use
  Company Number: US-ELI_LILLY_AND_COMPANY-US201909007060

PATIENT
  Sex: Female

DRUGS (1)
  1. CYRAMZA [Suspect]
     Active Substance: RAMUCIRUMAB
     Indication: LUNG NEOPLASM MALIGNANT
     Dosage: 642 MG, OVER 60MINUTES EVERY 3 WEEKS
     Route: 042
     Dates: start: 20190626

REACTIONS (5)
  - Blood glucose increased [Unknown]
  - Dyspepsia [Unknown]
  - Pyrexia [Unknown]
  - Cough [Unknown]
  - Diarrhoea haemorrhagic [Unknown]
